FAERS Safety Report 25314601 (Version 1)
Quarter: 2025Q2

REPORT INFORMATION
  Report Type: Spontaneous
  Country: US (occurrence: US)
  Receive Date: 20250514
  Receipt Date: 20250514
  Transmission Date: 20250717
  Serious: Yes (Hospitalization)
  Sender: ABBVIE
  Company Number: US-ABBVIE-6273889

PATIENT
  Age: 22 Year
  Sex: Female

DRUGS (1)
  1. HUMIRA [Suspect]
     Active Substance: ADALIMUMAB
     Indication: Psoriasis
     Dosage: STOP DATE: 2013 OR 2014
     Route: 058

REACTIONS (6)
  - Premature separation of placenta [Recovered/Resolved]
  - Haemorrhage [Recovered/Resolved]
  - Live birth [Unknown]
  - Maternal exposure during pregnancy [Unknown]
  - Gestational diabetes [Recovered/Resolved]
  - Pregnancy on contraceptive [Unknown]

NARRATIVE: CASE EVENT DATE: 20140101
